FAERS Safety Report 20749108 (Version 1)
Quarter: 2022Q2

REPORT INFORMATION
  Report Type: Spontaneous
  Country: US (occurrence: None)
  Receive Date: 20220425
  Receipt Date: 20220425
  Transmission Date: 20220721
  Serious: Yes (Hospitalization)
  Sender: FDA-Public Use
  Company Number: None

PATIENT
  Age: 90 Year
  Sex: Male
  Weight: 96.12 kg

DRUGS (20)
  1. ERLEADA [Suspect]
     Active Substance: APALUTAMIDE
     Indication: Prostate cancer
     Dosage: FREQUENCY : DAILY;?
     Route: 048
     Dates: start: 20191002
  2. ASPIRIN [Concomitant]
     Active Substance: ASPIRIN
  3. CALCIUM CARBONATE [Concomitant]
  4. CLOPIDOGREL [Concomitant]
  5. CRESTOR [Concomitant]
  6. CROMOLYN [Concomitant]
  7. DOCUSATE [Concomitant]
  8. ELIGARD [Concomitant]
     Active Substance: LEUPROLIDE ACETATE
  9. ESCITALOPRAM [Concomitant]
     Active Substance: ESCITALOPRAM OXALATE
  10. FAMOTIDINE [Concomitant]
     Active Substance: FAMOTIDINE
  11. FLOMAX [Concomitant]
     Active Substance: TAMSULOSIN HYDROCHLORIDE
  12. GLUCOSAMINE [Concomitant]
     Active Substance: GLUCOSAMINE
  13. HYDRLAZINE [Concomitant]
  14. ISOSORBIDE [Concomitant]
  15. LISINOPRIL [Concomitant]
  16. METOPROLOL [Concomitant]
  17. MULTIVITAMIN [Concomitant]
  18. NITROGLYCERIN [Concomitant]
     Active Substance: NITROGLYCERIN
  19. SODIUM CHLORIDE [Concomitant]
     Active Substance: SODIUM CHLORIDE
  20. VITAMIN D3 [Concomitant]
     Active Substance: CHOLECALCIFEROL

REACTIONS (1)
  - Cerebrovascular accident [None]
